FAERS Safety Report 11054852 (Version 1)
Quarter: 2015Q2

REPORT INFORMATION
  Report Type: Report from Study
  Country: NZ (occurrence: None)
  Receive Date: 20150420
  Receipt Date: 20150420
  Transmission Date: 20150821
  Serious: Yes (Other)
  Sender: FDA-Public Use
  Company Number: 2015-11056

PATIENT
  Sex: Male

DRUGS (1)
  1. EYLEA [Suspect]
     Active Substance: AFLIBERCEPT
     Indication: AGE-RELATED MACULAR DEGENERATION
     Dates: start: 20140630, end: 20140630

REACTIONS (3)
  - Visual acuity reduced [None]
  - Retinal haemorrhage [None]
  - Age-related macular degeneration [None]

NARRATIVE: CASE EVENT DATE: 20141018
